FAERS Safety Report 6999776-9 (Version None)
Quarter: 2010Q3

REPORT INFORMATION
  Report Type: 
  Country: None (occurrence: None)
  Receive Date: 20100920
  Receipt Date: 20100329
  Transmission Date: 20110219
  Serious: No
  Sender: FDA-Public Use
  Company Number: US-ASTRAZENECA-2010SE13818

PATIENT
  Sex: Male
  Weight: 79.4 kg

DRUGS (1)
  1. SEROQUEL [Suspect]
     Indication: BIPOLAR DISORDER
     Route: 048
     Dates: end: 20090101

REACTIONS (4)
  - ALCOHOL ABUSE [None]
  - DEPRESSED MOOD [None]
  - DRUG DOSE OMISSION [None]
  - IMPULSE-CONTROL DISORDER [None]
